FAERS Safety Report 5098921-2 (Version None)
Quarter: 2006Q3

REPORT INFORMATION
  Report Type: 
  Country: None (occurrence: None)
  Receive Date: 20060905
  Receipt Date: 20060823
  Transmission Date: 20061208
  Serious: Yes (Other)
  Sender: FDA-Public Use
  Company Number: 2006104920

PATIENT
  Sex: Female
  Weight: 68.0396 kg

DRUGS (1)
  1. SUDAFED 12 HOUR [Suspect]
     Dosage: ORAL
     Route: 048

REACTIONS (4)
  - ABNORMAL DREAMS [None]
  - HEPATIC FIBROSIS [None]
  - HEPATITIS C [None]
  - PERNICIOUS ANAEMIA [None]
